FAERS Safety Report 4610522-6 (Version None)
Quarter: 2005Q1

REPORT INFORMATION
  Report Type: 
  Country: None (occurrence: None)
  Receive Date: 20050316
  Receipt Date: 20050307
  Transmission Date: 20050727
  Serious: Yes (Death, Hospitalization)
  Sender: FDA-Public Use
  Company Number: ES-MERCK-0503ESP00021

PATIENT
  Age: 76 Year
  Sex: Female

DRUGS (7)
  1. COZAAR [Suspect]
     Route: 048
     Dates: start: 20020101
  2. FUROSEMIDE AND TRIAMTERENE [Suspect]
     Route: 048
     Dates: start: 20020101
  3. CARVEDILOL [Suspect]
     Route: 048
     Dates: start: 20020101
  4. DIAZEPAM [Concomitant]
     Route: 065
  5. METHYLPHENIDATE HYDROCHLORIDE [Concomitant]
     Route: 065
  6. VENLAFAXINE HYDROCHLORIDE [Concomitant]
     Route: 065
  7. RISPERIDONE [Concomitant]
     Route: 065

REACTIONS (2)
  - DEATH [None]
  - RENAL FAILURE ACUTE [None]
